FAERS Safety Report 16282505 (Version 2)
Quarter: 2019Q2

REPORT INFORMATION
  Report Type: Spontaneous
  Country: US (occurrence: US)
  Receive Date: 20190507
  Receipt Date: 20190514
  Transmission Date: 20190711
  Serious: Yes (Other)
  Sender: FDA-Public Use
  Company Number: US-BAUSCH-BL-2019-012592

PATIENT
  Age: 65 Year
  Sex: Female
  Weight: 115.77 kg

DRUGS (14)
  1. MURO 128 [Suspect]
     Active Substance: SODIUM CHLORIDE
     Indication: DRY EYE
     Dosage: IN EACH EYE AT BEDTIME, STARTED TWENTY YEARS AGO
     Route: 047
     Dates: end: 2013
  2. SUMATRIPTAN. [Concomitant]
     Active Substance: SUMATRIPTAN
     Dosage: STRENGTH: 6 MG / 5 ML
  3. POTASSIUM [Concomitant]
     Active Substance: POTASSIUM
     Indication: PRODUCT USED FOR UNKNOWN INDICATION
     Route: 048
  4. OCUSOFT LID SCRUB PLUS [POLYAMINOPROPYL BIGUANIDE] [Suspect]
     Active Substance: POLYAMINOPROPYL BIGUANIDE
     Indication: PRODUCT USED FOR UNKNOWN INDICATION
     Route: 047
     Dates: start: 20190416
  5. LATANOPROST OPHTHALMIC SOLUTION 0.005% [Suspect]
     Active Substance: LATANOPROST
     Indication: PRODUCT USED FOR UNKNOWN INDICATION
     Dosage: EVERY NIGHT
     Route: 047
     Dates: start: 20190402
  6. HYPOCHLOROUS ACID [Suspect]
     Active Substance: HYPOCHLOROUS ACID
  7. DOXYCYCLINE. [Suspect]
     Active Substance: DOXYCYCLINE
     Indication: BLEPHARITIS
     Route: 065
     Dates: start: 20190416, end: 201904
  8. DOXYCYCLINE. [Suspect]
     Active Substance: DOXYCYCLINE
     Route: 065
     Dates: start: 20190424
  9. MURO 128 [Suspect]
     Active Substance: SODIUM CHLORIDE
     Indication: DRY EYE
     Dosage: IN EACH EYE DURING THE DAY, STARTED TWENTY YEARS AGO
     Route: 047
  10. LOTEMAX [Suspect]
     Active Substance: LOTEPREDNOL ETABONATE
     Indication: PRODUCT USED FOR UNKNOWN INDICATION
     Dosage: DURING THE DAY
     Route: 047
     Dates: start: 20190416
  11. SUMATRIPTAN. [Concomitant]
     Active Substance: SUMATRIPTAN
     Indication: PRODUCT USED FOR UNKNOWN INDICATION
     Route: 048
  12. NAPROSYN [Concomitant]
     Active Substance: NAPROXEN
     Indication: PRODUCT USED FOR UNKNOWN INDICATION
     Dosage: AS NEEDED
     Route: 048
  13. LEVOTHYROXINE. [Concomitant]
     Active Substance: LEVOTHYROXINE
     Indication: PRODUCT USED FOR UNKNOWN INDICATION
     Route: 048
  14. MAGNESIUM CITRATE. [Concomitant]
     Active Substance: MAGNESIUM CITRATE
     Indication: PRODUCT USED FOR UNKNOWN INDICATION
     Route: 048

REACTIONS (8)
  - Eye injury [Not Recovered/Not Resolved]
  - Eye discharge [Not Recovered/Not Resolved]
  - Glaucoma [Not Recovered/Not Resolved]
  - Eye pruritus [Not Recovered/Not Resolved]
  - Eye inflammation [Not Recovered/Not Resolved]
  - Product deposit [Unknown]
  - Condition aggravated [Not Recovered/Not Resolved]
  - Eye irritation [Not Recovered/Not Resolved]

NARRATIVE: CASE EVENT DATE: 2013
